FAERS Safety Report 9011209 (Version 1)
Quarter: 2013Q1

REPORT INFORMATION
  Report Type: Spontaneous
  Country: US (occurrence: US)
  Receive Date: 20130109
  Receipt Date: 20130109
  Transmission Date: 20140127
  Serious: No
  Sender: FDA-Public Use
  Company Number: US-PFIZER INC-2013002811

PATIENT
  Age: 29 Year
  Sex: Female

DRUGS (3)
  1. AMOXICILLIN [Suspect]
     Dosage: UNK
  2. LIDOCAINE HCL [Suspect]
     Dosage: UNK
  3. SAVELLA [Suspect]
     Dosage: UNK

REACTIONS (2)
  - Drug hypersensitivity [Unknown]
  - Urticaria [Unknown]
